FAERS Safety Report 5360972-8 (Version None)
Quarter: 2007Q2

REPORT INFORMATION
  Report Type: 
  Country: None (occurrence: None)
  Receive Date: 20070618
  Receipt Date: 20070606
  Transmission Date: 20071010
  Serious: Yes (Other)
  Sender: FDA-Public Use
  Company Number: TR-PFIZER INC-2007048092

PATIENT
  Age: 40 Year
  Sex: Female

DRUGS (2)
  1. PREGABALIN [Suspect]
     Route: 048
  2. ACETYLCYSTEINE [Concomitant]
     Route: 048

REACTIONS (1)
  - SKIN REACTION [None]
